FAERS Safety Report 4939941-5 (Version None)
Quarter: 2006Q1

REPORT INFORMATION
  Report Type: 
  Country: None (occurrence: None)
  Receive Date: 20060310
  Receipt Date: 20040609
  Transmission Date: 20060701
  Serious: Yes (Life-Threatening, Other)
  Sender: FDA-Public Use
  Company Number: FR-SANOFI-SYNTHELABO-D01200402

PATIENT
  Age: 70 Year
  Sex: Male
  Weight: 69 kg

DRUGS (5)
  1. FONDAPARINUX [Suspect]
     Indication: ACUTE CORONARY SYNDROME
     Dosage: 2.5MG PER DAY
     Route: 058
     Dates: start: 20031106, end: 20031111
  2. ACE INHIBITOR [Concomitant]
  3. ASPIRIN [Concomitant]
  4. BETA-BLOCKER [Concomitant]
  5. CLOPIDOGREL [Concomitant]

REACTIONS (2)
  - CATHETER RELATED COMPLICATION [None]
  - CORONARY ARTERY THROMBOSIS [None]
